FAERS Safety Report 8373368-1 (Version None)
Quarter: 2012Q2

REPORT INFORMATION
  Report Type: 
  Country: None (occurrence: None)
  Receive Date: 20120521
  Receipt Date: 20120509
  Transmission Date: 20120825
  Serious: Yes (Other)
  Sender: FDA-Public Use
  Company Number: US-ELI_LILLY_AND_COMPANY-US201012001240

PATIENT
  Age: 54 Year
  Sex: Female

DRUGS (3)
  1. FORTEO [Suspect]
     Dosage: 20 UG, QD
  2. FORTEO [Suspect]
     Indication: OSTEOPOROSIS
     Dosage: 20 UG, DAILY (1/D)
     Dates: start: 20101124, end: 20110701
  3. FORTEO [Suspect]
     Dosage: 20 UG, QD

REACTIONS (10)
  - NECK SURGERY [None]
  - HEAD DISCOMFORT [None]
  - WRIST SURGERY [None]
  - HEART RATE INCREASED [None]
  - GENERAL PHYSICAL HEALTH DETERIORATION [None]
  - JOINT STIFFNESS [None]
  - CHEST DISCOMFORT [None]
  - FEELING HOT [None]
  - ALOPECIA [None]
  - ABDOMINAL DISCOMFORT [None]
